FAERS Safety Report 13659196 (Version 3)
Quarter: 2021Q1

REPORT INFORMATION
  Report Type: Spontaneous
  Country: GB (occurrence: GB)
  Receive Date: 20170616
  Receipt Date: 20210209
  Transmission Date: 20210419
  Serious: Yes (Hospitalization, Other)
  Sender: FDA-Public Use
  Company Number: GB-ACCORD-052686

PATIENT
  Age: 37 Year
  Sex: Female

DRUGS (12)
  1. DEXAMETHASONE. [Concomitant]
     Active Substance: DEXAMETHASONE
     Dosage: 3.6 MG, UNK (DOSAGE FORM: UNSPECIFIED)
     Route: 042
  2. GABAPENTIN. [Concomitant]
     Active Substance: GABAPENTIN
  3. PARACETAMOL [Concomitant]
     Active Substance: ACETAMINOPHEN
     Dosage: 1 G, UNK (DOSAGE FORM: UNSPECIFIED)
  4. ATRACURIUM [Concomitant]
     Active Substance: ATRACURIUM
     Dosage: 30 MG, UNK (DOSAGE FORM: UNSPECIFIED)
     Route: 042
  5. TRAMADOL. [Interacting]
     Active Substance: TRAMADOL
     Indication: PERIOPERATIVE ANALGESIA
     Dosage: 150 MILLIGRAM, QD (DOSAGE FORM: UNSPECIFIED)
     Route: 042
     Dates: start: 20170530, end: 20170530
  6. REMIFENTANIL/REMIFENTANIL HYDROCHLORIDE [Concomitant]
     Active Substance: REMIFENTANIL HYDROCHLORIDE
     Dosage: UNK
     Route: 042
  7. PARECOXIB/PARECOXIB SODIUM [Concomitant]
     Active Substance: PARECOXIB
     Dosage: 40 MG, UNK (DOSAGE FORM: UNSPECIFIED)
     Route: 042
  8. RESOLOR [Interacting]
     Active Substance: PRUCALOPRIDE SUCCINATE
     Indication: CONSTIPATION
     Dosage: 2 MILLIGRAM, QD
     Route: 048
  9. PROPOFOL. [Concomitant]
     Active Substance: PROPOFOL
     Dosage: UNK, UNKNOWN
     Route: 042
  10. MORPHINE [Concomitant]
     Active Substance: MORPHINE
     Route: 042
  11. ONDANSETRON [Suspect]
     Active Substance: ONDANSETRON
     Indication: PROPHYLAXIS OF NAUSEA AND VOMITING
     Dosage: 8 MILLIGRAM, QD (DOSAGE FORM: UNSPECIFIED)
     Route: 042
     Dates: start: 20170530, end: 20170530
  12. TIBOLONE [Concomitant]
     Active Substance: TIBOLONE
     Dosage: 2.5 MILLIGRAM, QD (DOSAGE FORM: UNSPECIFIED)

REACTIONS (8)
  - Serotonin syndrome [Recovering/Resolving]
  - Drug interaction [Unknown]
  - Vomiting [Unknown]
  - Hyperreflexia [Unknown]
  - Somnolence [Unknown]
  - Nausea [Unknown]
  - Myoclonus [Unknown]
  - Renal impairment [Unknown]

NARRATIVE: CASE EVENT DATE: 20170530
